FAERS Safety Report 8111378-X (Version None)
Quarter: 2012Q1

REPORT INFORMATION
  Report Type: 
  Country: None (occurrence: None)
  Receive Date: 20120203
  Receipt Date: 20111019
  Transmission Date: 20120608
  Serious: No
  Sender: FDA-Public Use
  Company Number: US-GLAXOSMITHKLINE-A0949714A

PATIENT
  Sex: Female

DRUGS (5)
  1. LAMOTRIGINE [Suspect]
     Indication: BIPOLAR DISORDER
     Dosage: 25MG PER DAY
     Route: 048
     Dates: start: 20110928
  2. LYRICA [Concomitant]
  3. PREMPRO [Suspect]
     Route: 065
  4. VALIUM [Concomitant]
     Route: 048
  5. AMBIEN [Concomitant]

REACTIONS (4)
  - PANIC ATTACK [None]
  - INSOMNIA [None]
  - ANXIETY [None]
  - HYPERHIDROSIS [None]
